FAERS Safety Report 17965376 (Version 2)
Quarter: 2020Q4

REPORT INFORMATION
  Report Type: Report from Study
  Country: US (occurrence: US)
  Receive Date: 20200630
  Receipt Date: 20201201
  Transmission Date: 20210113
  Serious: No
  Sender: FDA-Public Use
  Company Number: US-SA-2019SA255560

PATIENT

DRUGS (4)
  1. SYMBICORT [Concomitant]
     Active Substance: BUDESONIDE\FORMOTEROL FUMARATE DIHYDRATE
     Indication: ASTHMA
  2. DUPILUMAB [Suspect]
     Active Substance: DUPILUMAB
     Dosage: 300 MG, QOW
     Route: 058
     Dates: start: 201910
  3. SINGULAIR [Concomitant]
     Active Substance: MONTELUKAST SODIUM
     Indication: ASTHMA
  4. DUPILUMAB [Suspect]
     Active Substance: DUPILUMAB
     Indication: ASTHMA
     Dosage: 600 MG, 1X
     Route: 058
     Dates: start: 20190814, end: 20190814

REACTIONS (10)
  - Oropharyngeal discomfort [Recovered/Resolved]
  - Chest discomfort [Recovered/Resolved]
  - Asthma [Recovering/Resolving]
  - Pyrexia [Recovering/Resolving]
  - Respiratory tract congestion [Not Recovered/Not Resolved]
  - Secretion discharge [Recovered/Resolved]
  - Environmental exposure [Unknown]
  - Therapeutic product effect decreased [Unknown]
  - Pain [Recovered/Resolved]
  - Headache [Recovered/Resolved]

NARRATIVE: CASE EVENT DATE: 20200201
